FAERS Safety Report 4776620-1 (Version None)
Quarter: 2005Q3

REPORT INFORMATION
  Report Type: 
  Country: None (occurrence: None)
  Receive Date: 20050921
  Receipt Date: 20050912
  Transmission Date: 20060218
  Serious: Yes (Death, Hospitalization)
  Sender: FDA-Public Use
  Company Number: 2005-08-2280

PATIENT
  Age: 62 Year
  Sex: Male

DRUGS (2)
  1. INTRON A [Suspect]
     Indication: METASTATIC RENAL CELL CARCINOMA
     Dosage: 10 MIU TIW SUBCUTANEOUS
     Route: 058
     Dates: start: 20050512, end: 20050512
  2. LOTREL [Suspect]

REACTIONS (6)
  - DRUG EFFECT INCREASED [None]
  - HYPOTENSION [None]
  - PNEUMONIA [None]
  - SEPSIS [None]
  - SEPTIC SHOCK [None]
  - URINARY TRACT INFECTION [None]
